FAERS Safety Report 10505329 (Version 1)
Quarter: 2014Q3

REPORT INFORMATION
  Report Type: Spontaneous
  Country: US (occurrence: None)
  Receive Date: 20140915
  Receipt Date: 20140915
  Transmission Date: 20150326
  Serious: Yes (Other)
  Sender: FDA-Public Use
  Company Number: JPI-P-005892

PATIENT
  Age: 31 Year
  Sex: Female
  Weight: 70.5 kg

DRUGS (2)
  1. XYREM [Suspect]
     Active Substance: SODIUM OXYBATE
     Indication: NARCOLEPSY
     Route: 048
     Dates: start: 200808, end: 2008
  2. XYREM [Suspect]
     Active Substance: SODIUM OXYBATE
     Indication: CATAPLEXY
     Route: 048
     Dates: start: 200808, end: 2008

REACTIONS (5)
  - Migraine [None]
  - Poor quality sleep [None]
  - Unevaluable event [None]
  - Enuresis [None]
  - Weight decreased [None]

NARRATIVE: CASE EVENT DATE: 200808
